FAERS Safety Report 9627885 (Version 2)
Quarter: 2013Q4

REPORT INFORMATION
  Report Type: Not Available
  Country: US (occurrence: US)
  Receive Date: 20131016
  Receipt Date: 20131016
  Transmission Date: 20140711
  Serious: Yes (Hospitalization)
  Sender: FDA-Public Use
  Company Number: US-LUNDBECK-DKLU1092911

PATIENT
  Age: 32 Year
  Sex: Female
  Weight: 74 kg

DRUGS (35)
  1. SABRIL [Suspect]
     Indication: COMPLEX PARTIAL SEIZURES
     Route: 048
     Dates: start: 20130315, end: 20130321
  2. SABRIL [Suspect]
     Route: 048
     Dates: start: 20130322, end: 20130328
  3. SABRIL [Suspect]
     Route: 048
     Dates: start: 20130322, end: 20130328
  4. SABRIL [Suspect]
     Route: 048
     Dates: start: 20130329, end: 20130402
  5. SABRIL [Suspect]
     Route: 048
     Dates: start: 20130403, end: 20130415
  6. SABRIL [Suspect]
     Route: 048
     Dates: start: 20130403, end: 20130415
  7. SABRIL [Suspect]
     Route: 048
     Dates: start: 20130416, end: 20130520
  8. SABRIL [Suspect]
     Route: 048
     Dates: start: 20130521, end: 20130613
  9. SABRIL [Suspect]
     Route: 048
     Dates: start: 20130613, end: 20130719
  10. SABRIL [Suspect]
     Route: 048
     Dates: start: 20130719, end: 20130722
  11. SABRIL [Suspect]
     Route: 048
     Dates: start: 20130719, end: 20130722
  12. SABRIL [Suspect]
     Route: 048
     Dates: start: 20130722, end: 20130808
  13. SABRIL [Suspect]
     Route: 048
     Dates: start: 20130722, end: 20130808
  14. SABRIL [Suspect]
     Route: 048
     Dates: start: 20130809, end: 20130809
  15. SABRIL [Suspect]
     Route: 048
     Dates: start: 20130809, end: 20130809
  16. SABRIL [Suspect]
     Route: 048
     Dates: start: 20130810, end: 20130811
  17. SABRIL [Suspect]
     Route: 048
     Dates: start: 20130810, end: 20130811
  18. SABRIL [Suspect]
     Route: 048
     Dates: start: 20130812, end: 20130813
  19. FELBAMATE [Concomitant]
     Indication: CONVULSION
     Route: 048
     Dates: start: 20121111
  20. FELBAMATE [Concomitant]
     Route: 048
     Dates: start: 20121111
  21. POTIGA [Concomitant]
     Indication: CONVULSION
     Route: 048
     Dates: start: 20121125, end: 20130316
  22. POTIGA [Concomitant]
     Route: 048
     Dates: start: 20121125, end: 20130316
  23. POTIGA [Concomitant]
     Route: 048
     Dates: start: 20121125, end: 20130316
  24. POTIGA [Concomitant]
     Route: 048
     Dates: start: 20130317, end: 20130322
  25. POTIGA [Concomitant]
     Route: 048
     Dates: start: 20130323, end: 20130324
  26. POTIGA [Concomitant]
     Route: 048
     Dates: start: 20130323, end: 20130324
  27. POTIGA [Concomitant]
     Route: 048
     Dates: start: 20130325, end: 20130329
  28. POTIGA [Concomitant]
     Route: 048
     Dates: start: 20130330, end: 20130401
  29. POTIGA [Concomitant]
     Route: 048
     Dates: start: 20130330, end: 20130401
  30. POTIGA [Concomitant]
     Route: 048
     Dates: start: 20130402, end: 20130404
  31. POTIGA [Concomitant]
     Route: 048
     Dates: start: 20130405, end: 20130406
  32. IBUPROFEN [Concomitant]
     Indication: HEADACHE
     Route: 048
     Dates: start: 201012
  33. MELATONIN [Concomitant]
     Indication: INSOMNIA
     Route: 048
     Dates: start: 20101215
  34. MULTIVITAMINS [Concomitant]
     Indication: VITAMIN SUPPLEMENTATION
     Route: 048
     Dates: start: 1990
  35. PENICILLIN [Concomitant]
     Indication: PHARYNGITIS STREPTOCOCCAL
     Route: 048
     Dates: start: 20130312, end: 20130321

REACTIONS (2)
  - Convulsion [Recovered/Resolved]
  - Postictal state [Recovered/Resolved]
